FAERS Safety Report 6783688-X (Version None)
Quarter: 2010Q2

REPORT INFORMATION
  Report Type: 
  Country: None (occurrence: None)
  Receive Date: 20100622
  Receipt Date: 20100615
  Transmission Date: 20101027
  Serious: Yes (Hospitalization)
  Sender: FDA-Public Use
  Company Number: AU-ROCHE-709518

PATIENT
  Age: 77 Year
  Sex: Female
  Weight: 61 kg

DRUGS (6)
  1. AVASTIN [Suspect]
     Indication: DRUG USE FOR UNKNOWN INDICATION
     Dosage: 1 DOSE (UNSPECIFIED) ONE TIME
     Route: 065
     Dates: start: 20100323, end: 20100323
  2. CARTIA XT [Concomitant]
     Dates: start: 20090915
  3. FOLIC ACID [Concomitant]
     Dates: start: 20090915
  4. OSTELIN [Concomitant]
     Dosage: 1 DOSE DAILY
     Dates: start: 20090915
  5. CALCIUM CARBONATE [Concomitant]
     Dosage: 1 DOSE DAILY1
     Dates: start: 20090915
  6. PERIACTIN [Concomitant]

REACTIONS (2)
  - CEREBRAL THROMBOSIS [None]
  - OFF LABEL USE [None]
